FAERS Safety Report 14936400 (Version 2)
Quarter: 2018Q2

REPORT INFORMATION
  Report Type: Spontaneous
  Country: BR (occurrence: BR)
  Receive Date: 20180524
  Receipt Date: 20180528
  Transmission Date: 20180711
  Serious: Yes (Death, Hospitalization, Other)
  Sender: FDA-Public Use
  Company Number: BR-B.I. PHARMACEUTICALS,INC./RIDGEFIELD-2018-BI-017598

PATIENT
  Age: 37 Year
  Sex: Female

DRUGS (1)
  1. GILOTRIF [Suspect]
     Active Substance: AFATINIB
     Indication: METASTATIC NEOPLASM
     Route: 065
     Dates: start: 201803

REACTIONS (6)
  - Drug administration error [Unknown]
  - Malignant neoplasm progression [Fatal]
  - Asthenia [Unknown]
  - Dysphagia [Unknown]
  - Malaise [Unknown]
  - Off label use [Unknown]
